FAERS Safety Report 6337116-9 (Version None)
Quarter: 2009Q3

REPORT INFORMATION
  Report Type: 
  Country: None (occurrence: None)
  Receive Date: 20090831
  Receipt Date: 20090824
  Transmission Date: 20100115
  Serious: Yes (Other)
  Sender: FDA-Public Use
  Company Number: 2009SP022190

PATIENT
  Age: 1 Year
  Sex: Male

DRUGS (1)
  1. COPPERTONE WATER BABIES LOTION, SPF 50 [Suspect]
     Dosage: TOP
     Route: 061
     Dates: start: 20090629

REACTIONS (1)
  - ANAPHYLACTIC REACTION [None]
